FAERS Safety Report 10306028 (Version 1)
Quarter: 2014Q3

REPORT INFORMATION
  Report Type: Spontaneous
  Country: US (occurrence: None)
  Receive Date: 20140714
  Receipt Date: 20140714
  Transmission Date: 20150326
  Serious: No
  Sender: FDA-Public Use
  Company Number: None

PATIENT
  Age: 64 Year
  Sex: Female
  Weight: 72.58 kg

DRUGS (1)
  1. PROLIA [Suspect]
     Active Substance: DENOSUMAB
     Indication: OSTEOPOROSIS
     Dosage: 1 INJECTION?EVERY 6 MONTHS?SUBCUTANEOUS INJECTION
     Route: 058
     Dates: start: 20140613

REACTIONS (3)
  - Rash generalised [None]
  - Pruritus [None]
  - Sleep disorder [None]

NARRATIVE: CASE EVENT DATE: 20140613
